FAERS Safety Report 10579421 (Version 3)
Quarter: 2016Q1

REPORT INFORMATION
  Report Type: Spontaneous
  Country: US (occurrence: US)
  Receive Date: 20141112
  Receipt Date: 20160203
  Transmission Date: 20160525
  Serious: Yes (Hospitalization)
  Sender: FDA-Public Use
  Company Number: US-BAYER-2014-166497

PATIENT
  Age: 27 Year
  Sex: Female
  Weight: 68.27 kg

DRUGS (2)
  1. MIRENA [Suspect]
     Active Substance: LEVONORGESTREL
     Indication: CONTRACEPTION
     Dosage: 20 MCG/24HR, CONT
     Route: 015
     Dates: start: 20080523, end: 20081011
  2. NORCO [Concomitant]
     Active Substance: ACETAMINOPHEN\HYDROCODONE BITARTRATE

REACTIONS (12)
  - Device issue [None]
  - Fibromyalgia [Not Recovered/Not Resolved]
  - Infertility female [None]
  - Uterine injury [None]
  - Depression [None]
  - Pelvic pain [Not Recovered/Not Resolved]
  - Injury [None]
  - Pelvic inflammatory disease [None]
  - Abdominal pain [None]
  - Uterine perforation [None]
  - Discomfort [None]
  - Stress [None]

NARRATIVE: CASE EVENT DATE: 200810
